FAERS Safety Report 17274743 (Version 2)
Quarter: 2020Q1

REPORT INFORMATION
  Report Type: Report from Study
  Country: None (occurrence: US)
  Receive Date: 20200115
  Receipt Date: 20200327
  Transmission Date: 20200409
  Serious: Yes (Hospitalization)
  Sender: FDA-Public Use
  Company Number: US-ABBVIE-20K-163-3231581-00

PATIENT
  Age: 58 Year
  Sex: Female

DRUGS (1)
  1. HUMIRA [Suspect]
     Active Substance: ADALIMUMAB
     Indication: CROHN^S DISEASE
     Route: 058

REACTIONS (6)
  - Dehydration [Unknown]
  - Influenza [Recovering/Resolving]
  - Blood magnesium decreased [Unknown]
  - Blood potassium decreased [Unknown]
  - Hernia [Unknown]
  - Renal disorder [Unknown]

NARRATIVE: CASE EVENT DATE: 202002
